FAERS Safety Report 8216919-X (Version None)
Quarter: 2012Q1

REPORT INFORMATION
  Report Type: 
  Country: None (occurrence: None)
  Receive Date: 20120318
  Receipt Date: 20120308
  Transmission Date: 20120608
  Serious: Yes (Hospitalization, Other)
  Sender: FDA-Public Use
  Company Number: CA-ROCHE-1007788

PATIENT
  Sex: Female

DRUGS (5)
  1. XOLAIR [Suspect]
     Dates: start: 20120112
  2. ADVAIR DISKUS 100/50 [Concomitant]
  3. SPIRIVA [Concomitant]
  4. SINGULAIR [Concomitant]
  5. XOLAIR [Suspect]
     Indication: ASTHMA
     Route: 058
     Dates: start: 20110425

REACTIONS (10)
  - DYSPNOEA [None]
  - MALAISE [None]
  - WEIGHT INCREASED [None]
  - LUNG INFECTION [None]
  - BLOOD PRESSURE INCREASED [None]
  - ASTHMA [None]
  - LOSS OF CONSCIOUSNESS [None]
  - NASOPHARYNGITIS [None]
  - PANIC ATTACK [None]
  - WEIGHT DECREASED [None]
